FAERS Safety Report 6904272-0 (Version None)
Quarter: 2010Q3

REPORT INFORMATION
  Report Type: 
  Country: None (occurrence: None)
  Receive Date: 20100804
  Receipt Date: 20090419
  Transmission Date: 20110219
  Serious: No
  Sender: FDA-Public Use
  Company Number: US-PFIZER INC-2009155895

PATIENT
  Sex: Male
  Weight: 146 kg

DRUGS (1)
  1. LYRICA [Suspect]
     Dosage: 225 MG, UNK

REACTIONS (2)
  - INCORRECT DOSE ADMINISTERED [None]
  - INCREASED APPETITE [None]
